FAERS Safety Report 4984992-8 (Version None)
Quarter: 2006Q2

REPORT INFORMATION
  Report Type: 
  Country: None (occurrence: None)
  Receive Date: 20060426
  Receipt Date: 20060426
  Transmission Date: 20061013
  Serious: Yes (Other)
  Sender: FDA-Public Use
  Company Number: None

PATIENT
  Age: 26 Year
  Weight: 68 kg

DRUGS (1)
  1. CLINDAMYCIN HCL [Suspect]
     Indication: CELLULITIS
     Dosage: 600 MG EVERY 8 HOURS IV DRIP
     Dates: start: 20060410

REACTIONS (2)
  - CHEST DISCOMFORT [None]
  - DYSPNOEA [None]
